FAERS Safety Report 7487606-0 (Version None)
Quarter: 2011Q1

REPORT INFORMATION
  Report Type: 
  Country: None (occurrence: None)
  Receive Date: 20110309
  Receipt Date: 20101221
  Transmission Date: 20110831
  Serious: Yes (Other)
  Sender: FDA-Public Use
  Company Number: 2010SP065725

PATIENT
  Age: 20 Year
  Sex: Female

DRUGS (3)
  1. EQUETRO [Concomitant]
  2. SAPHRIS [Suspect]
     Indication: BIPOLAR DISORDER
     Dosage: 15 MG; QD; SL
     Route: 060
     Dates: start: 20101001
  3. CLONIPINE [Concomitant]

REACTIONS (2)
  - INAPPROPRIATE SCHEDULE OF DRUG ADMINISTRATION [None]
  - EXTRAPYRAMIDAL DISORDER [None]
